FAERS Safety Report 6630301-8 (Version None)
Quarter: 2010Q1

REPORT INFORMATION
  Report Type: 
  Country: None (occurrence: None)
  Receive Date: 20100311
  Receipt Date: 20100303
  Transmission Date: 20100710
  Serious: Yes (Other)
  Sender: FDA-Public Use
  Company Number: PHHY2010GB13769

PATIENT

DRUGS (2)
  1. FEMARA [Suspect]
     Route: 048
  2. HERCEPTIN [Concomitant]

REACTIONS (1)
  - THYROID DISORDER [None]
